FAERS Safety Report 6558876-8 (Version None)
Quarter: 2010Q1

REPORT INFORMATION
  Report Type: 
  Country: None (occurrence: None)
  Receive Date: 20100129
  Receipt Date: 20100122
  Transmission Date: 20100710
  Serious: Yes (Hospitalization, Other)
  Sender: FDA-Public Use
  Company Number: US-AMGEN-QUU381804

PATIENT
  Sex: Male
  Weight: 79.5 kg

DRUGS (7)
  1. ENBREL [Suspect]
     Indication: RHEUMATOID ARTHRITIS
     Route: 058
     Dates: start: 20040101
  2. TYLENOL-500 [Concomitant]
  3. CENTRUM SILVER [Concomitant]
  4. VITAMIN D [Concomitant]
  5. KEFLEX [Concomitant]
  6. CITRACAL [Concomitant]
  7. ZOLEDRONIC ACID [Concomitant]

REACTIONS (6)
  - BREATH SOUNDS ABNORMAL [None]
  - COUGH [None]
  - ECCHYMOSIS [None]
  - ESCHERICHIA URINARY TRACT INFECTION [None]
  - JOINT CREPITATION [None]
  - TACHYCARDIA [None]
